FAERS Safety Report 5302936-6 (Version None)
Quarter: 2007Q2

REPORT INFORMATION
  Report Type: 
  Country: None (occurrence: None)
  Receive Date: 20070413
  Receipt Date: 20070402
  Transmission Date: 20071010
  Serious: Yes (Hospitalization)
  Sender: FDA-Public Use
  Company Number: 070411-0000379

PATIENT
  Age: 10 Day
  Sex: Male

DRUGS (1)
  1. NEOPROFEN [Suspect]
     Indication: PATENT DUCTUS ARTERIOSUS
     Dosage: 5 MG/KG; QD; IV
     Route: 042
     Dates: start: 20070130, end: 20070202

REACTIONS (3)
  - HAEMORRHAGE NEONATAL [None]
  - HEPATIC HAEMORRHAGE [None]
  - SKIN HAEMORRHAGE [None]
